FAERS Safety Report 4403660-4 (Version None)
Quarter: 2004Q3

REPORT INFORMATION
  Report Type: 
  Country: None (occurrence: None)
  Receive Date: 20040721
  Receipt Date: 20040713
  Transmission Date: 20050211
  Serious: Yes (Other)
  Sender: FDA-Public Use
  Company Number: US-ROCHE-374369

PATIENT
  Age: 55 Year
  Sex: Male
  Weight: 84.4 kg

DRUGS (1)
  1. XELODA [Suspect]
     Indication: COLON CANCER STAGE III
     Dosage: ADMINISTERED TWICE DAILY FOR TWO WEEKS
     Route: 048
     Dates: start: 20040713

REACTIONS (2)
  - PSORIASIS [None]
  - PSORIATIC ARTHROPATHY [None]
